FAERS Safety Report 6724166-3 (Version None)
Quarter: 2010Q2

REPORT INFORMATION
  Report Type: 
  Country: None (occurrence: None)
  Receive Date: 20100511
  Receipt Date: 20100426
  Transmission Date: 20101027
  Serious: Yes (Other)
  Sender: FDA-Public Use
  Company Number: 7002916

PATIENT
  Age: 50 Year
  Sex: Male

DRUGS (1)
  1. NOVANTRONE [Suspect]
     Indication: MULTIPLE SCLEROSIS
     Dates: start: 20080101

REACTIONS (3)
  - FATIGUE [None]
  - INFUSION RELATED REACTION [None]
  - VOMITING [None]
